FAERS Safety Report 5318239-X (Version None)
Quarter: 2007Q1

REPORT INFORMATION
  Report Type: 
  Country: None (occurrence: None)
  Receive Date: 20070201
  Receipt Date: 20060207
  Transmission Date: 20070707
  Serious: Yes (Other)
  Sender: FDA-Public Use
  Company Number: WAES 0602USA01681

PATIENT
  Sex: Female

DRUGS (2)
  1. PRIMAXIN [Suspect]
     Dosage: IV
     Route: 042
  2. [THERAPY UNSPECIFIED] [Concomitant]

REACTIONS (1)
  - CONVULSION [None]
